FAERS Safety Report 25373623 (Version 2)
Quarter: 2025Q3

REPORT INFORMATION
  Report Type: Spontaneous
  Country: EU (occurrence: EU)
  Receive Date: 20250529
  Receipt Date: 20250814
  Transmission Date: 20251021
  Serious: Yes (Hospitalization)
  Sender: ELI LILLY AND COMPANY
  Company Number: EU-ELI_LILLY_AND_COMPANY-LU202505018202

PATIENT
  Age: 58 Year
  Sex: Female

DRUGS (1)
  1. CYMBALTA [Suspect]
     Active Substance: DULOXETINE HYDROCHLORIDE
     Indication: Depression
     Route: 065
     Dates: start: 2010

REACTIONS (8)
  - Type 2 diabetes mellitus [Recovered/Resolved]
  - Limb injury [Unknown]
  - Urosepsis [Unknown]
  - Pyelonephritis [Recovered/Resolved]
  - Syncope [Recovered/Resolved]
  - Neuropathy peripheral [Unknown]
  - Urinary tract infection [Unknown]
  - Agitation [Unknown]

NARRATIVE: CASE EVENT DATE: 20240101
